FAERS Safety Report 10219156 (Version 1)
Quarter: 2014Q2

REPORT INFORMATION
  Report Type: Spontaneous
  Country: US (occurrence: None)
  Receive Date: 20140604
  Receipt Date: 20140604
  Transmission Date: 20141212
  Serious: No
  Sender: FDA-Public Use
  Company Number: None

PATIENT
  Age: 65 Year
  Sex: Female
  Weight: 68.04 kg

DRUGS (1)
  1. MYRBETRIQ [Suspect]
     Indication: HYPERTONIC BLADDER
     Dosage: 1 PILL ONCE DAILY TAKEN BY MOUTH
     Route: 048

REACTIONS (5)
  - Fall [None]
  - Fatigue [None]
  - Cold sweat [None]
  - Night sweats [None]
  - Headache [None]
